FAERS Safety Report 5087787-2 (Version None)
Quarter: 2006Q3

REPORT INFORMATION
  Report Type: 
  Country: None (occurrence: None)
  Receive Date: 20060824
  Receipt Date: 20060822
  Transmission Date: 20061208
  Serious: Yes (Other)
  Sender: FDA-Public Use
  Company Number: US-JNJFOC-20060800660

PATIENT
  Sex: Male
  Weight: 59.88 kg

DRUGS (5)
  1. REMICADE [Suspect]
     Dosage: THIRD INFUSION
     Route: 042
  2. REMICADE [Suspect]
     Route: 042
  3. REMICADE [Suspect]
     Indication: RHEUMATOID ARTHRITIS
     Route: 042
  4. METHOTREXATE [Concomitant]
     Indication: RHEUMATOID ARTHRITIS
  5. FOSAMAX PLUS D [Concomitant]
     Indication: OSTEOPOROSIS

REACTIONS (2)
  - LOSS OF CONSCIOUSNESS [None]
  - PULSE ABSENT [None]
